FAERS Safety Report 13627756 (Version 1)
Quarter: 2017Q2

REPORT INFORMATION
  Report Type: Spontaneous
  Country: US (occurrence: US)
  Receive Date: 20170531
  Receipt Date: 20170531
  Transmission Date: 20170830
  Serious: Yes (Other)
  Sender: FDA-Public Use
  Company Number: US-ASTELLAS-1578056

PATIENT
  Age: 73 Year
  Sex: Female

DRUGS (1)
  1. TARCEVA [Suspect]
     Active Substance: ERLOTINIB HYDROCHLORIDE
     Indication: LUNG NEOPLASM MALIGNANT
     Route: 065

REACTIONS (8)
  - Rash [Unknown]
  - Weight decreased [Unknown]
  - Skin exfoliation [Unknown]
  - Drug ineffective [Unknown]
  - Recurrent cancer [Unknown]
  - Dry skin [Unknown]
  - Decreased appetite [Unknown]
  - Gastrointestinal disorder [Unknown]
